FAERS Safety Report 16368552 (Version 1)
Quarter: 2019Q2

REPORT INFORMATION
  Report Type: Spontaneous
  Country: IT (occurrence: IT)
  Receive Date: 20190529
  Receipt Date: 20190529
  Transmission Date: 20190711
  Serious: Yes (Death)
  Sender: FDA-Public Use
  Company Number: IT-MYLANLABS-2019M1049981

PATIENT
  Age: 2 Year
  Sex: Female

DRUGS (2)
  1. OCTREOTIDE. [Concomitant]
     Active Substance: OCTREOTIDE
     Dosage: UNK
     Route: 042
     Dates: start: 201006, end: 201006
  2. OMEPRAZOLE. [Suspect]
     Active Substance: OMEPRAZOLE
     Indication: PRODUCT USED FOR UNKNOWN INDICATION
     Dosage: UNK
     Route: 042
     Dates: start: 201006, end: 201006

REACTIONS (3)
  - Cardio-respiratory arrest [Fatal]
  - Haematemesis [Fatal]
  - Aorto-oesophageal fistula [Fatal]

NARRATIVE: CASE EVENT DATE: 201006
